FAERS Safety Report 6158467-7 (Version None)
Quarter: 2009Q2

REPORT INFORMATION
  Report Type: 
  Country: None (occurrence: None)
  Receive Date: 20090417
  Receipt Date: 20090408
  Transmission Date: 20091009
  Serious: Yes (Death)
  Sender: FDA-Public Use
  Company Number: JP-AVENTIS-200911017JP

PATIENT
  Sex: Male

DRUGS (3)
  1. DOCETAXEL HYDRATE [Suspect]
     Indication: PROSTATE CANCER RECURRENT
     Route: 041
  2. PREDNISOLONE [Concomitant]
     Route: 048
  3. LH-RH [Concomitant]

REACTIONS (1)
  - PNEUMONITIS [None]
